FAERS Safety Report 23656267 (Version 3)
Quarter: 2024Q2

REPORT INFORMATION
  Report Type: Report from Study
  Country: CA (occurrence: CA)
  Receive Date: 20240321
  Receipt Date: 20240527
  Transmission Date: 20240715
  Serious: Yes (Other)
  Sender: FDA-Public Use
  Company Number: CA-002147023-NVSC2024CA061045

PATIENT
  Age: 53 Year
  Sex: Male

DRUGS (3)
  1. COSENTYX [Suspect]
     Active Substance: SECUKINUMAB
     Indication: Psoriasis
     Dosage: 450 MG, Q2W
     Route: 058
     Dates: start: 20221222
  2. DAPSONE [Concomitant]
     Active Substance: DAPSONE
     Indication: Product used for unknown indication
     Dosage: UNK
     Route: 065
  3. DAPSONE [Concomitant]
     Active Substance: DAPSONE
     Dosage: 0.5 DOSAGE FORM
     Route: 065

REACTIONS (6)
  - Pneumonia [Unknown]
  - Incorrect dose administered [Unknown]
  - Dyspnoea [Unknown]
  - Discharge [Unknown]
  - White blood cell disorder [Unknown]
  - Abscess [Unknown]
